FAERS Safety Report 8814608 (Version 1)
Quarter: 2012Q4

REPORT INFORMATION
  Report Type: 
  Country: US (occurrence: US)
  Receive Date: 20120928
  Receipt Date: 20120928
  Transmission Date: 20130627
  Serious: Yes (Hospitalization)
  Sender: FDA-Public Use
  Company Number: US-JNJFOC-20111109204

PATIENT
  Age: 67 Year
  Sex: Female
  Weight: 55.79 kg

DRUGS (5)
  1. MOTRIN IB [Suspect]
     Indication: ARTHRALGIA
     Dosage: 4 caplets every 4 hours
     Route: 048
  2. MOTRIN IB [Suspect]
     Indication: PYREXIA
     Dosage: 4 caplets every 4 hours
     Route: 048
  3. SYNTHROID [Concomitant]
     Indication: THYROID DISORDER
     Dosage: daily
     Route: 065
  4. ATIVAN [Concomitant]
     Dosage: daily
     Route: 065
  5. VITAMIN D3 [Concomitant]
     Indication: HYPOVITAMINOSIS
     Dosage: daily
     Route: 065

REACTIONS (3)
  - Chest pain [Recovered/Resolved]
  - Back pain [Recovered/Resolved]
  - Overdose [Unknown]
